FAERS Safety Report 20530553 (Version 1)
Quarter: 2022Q1

REPORT INFORMATION
  Report Type: Report from Study
  Country: CA (occurrence: CA)
  Receive Date: 20220301
  Receipt Date: 20220301
  Transmission Date: 20220423
  Serious: Yes (Other)
  Sender: FDA-Public Use
  Company Number: CA-ABBVIE-21K-028-4066150-00

PATIENT
  Sex: Female
  Weight: 125 kg

DRUGS (1)
  1. HUMIRA [Suspect]
     Active Substance: ADALIMUMAB
     Indication: Crohn^s disease
     Route: 058
     Dates: start: 20180629

REACTIONS (14)
  - Asphyxia [Unknown]
  - Weight increased [Not Recovered/Not Resolved]
  - Obesity [Not Recovered/Not Resolved]
  - Umbilical hernia [Not Recovered/Not Resolved]
  - Tooth loss [Unknown]
  - Illness [Unknown]
  - Fatigue [Unknown]
  - Hiatus hernia [Not Recovered/Not Resolved]
  - Abdominal distension [Unknown]
  - Stress [Unknown]
  - Injection site pain [Recovered/Resolved]
  - Angina pectoris [Not Recovered/Not Resolved]
  - Diarrhoea [Unknown]
  - Dyspnoea [Unknown]

NARRATIVE: CASE EVENT DATE: 20200101
